FAERS Safety Report 9812716 (Version 2)
Quarter: 2014Q1

REPORT INFORMATION
  Report Type: Spontaneous
  Country: US (occurrence: US)
  Receive Date: 20140113
  Receipt Date: 20140113
  Transmission Date: 20141002
  Serious: No
  Sender: FDA-Public Use
  Company Number: 2013SP008730

PATIENT
  Age: 33 Year
  Sex: Female

DRUGS (5)
  1. VANCOMYCIN [Suspect]
     Indication: BREAST ABSCESS
  2. CEFALEXIN [Suspect]
     Indication: BREAST ABSCESS
  3. DOXYCYCLINE [Suspect]
     Indication: BREAST ABSCESS
  4. MINOCYCLINE [Concomitant]
  5. LINEZOLID [Concomitant]

REACTIONS (2)
  - Drug ineffective [Unknown]
  - Breast abscess [Unknown]
